FAERS Safety Report 4870480-6 (Version None)
Quarter: 2006Q1

REPORT INFORMATION
  Report Type: 
  Country: None (occurrence: None)
  Receive Date: 20060103
  Receipt Date: 20051221
  Transmission Date: 20060701
  Serious: Yes (Hospitalization)
  Sender: FDA-Public Use
  Company Number: FR-BRISTOL-MYERS SQUIBB COMPANY-13227319

PATIENT
  Age: 84 Year
  Sex: Female

DRUGS (12)
  1. COUMADIN [Suspect]
     Route: 048
     Dates: end: 20051128
  2. NEO-MERCAZOLE TAB [Concomitant]
     Dates: end: 20051128
  3. LASILIX [Concomitant]
     Dates: end: 20051128
  4. FUMAFER [Concomitant]
     Dates: end: 20051128
  5. ESBERIVEN [Concomitant]
     Dates: end: 20051128
  6. ALDACTONE [Concomitant]
     Dates: end: 20051128
  7. TEMESTA [Concomitant]
     Dates: end: 20051202
  8. DEROXAT [Concomitant]
     Dates: end: 20051202
  9. LANZOR [Concomitant]
     Dates: end: 20051202
  10. COVERSYL [Concomitant]
  11. KERLONE [Concomitant]
  12. TOPALGIC [Concomitant]

REACTIONS (4)
  - ANAEMIA [None]
  - DEHYDRATION [None]
  - DIARRHOEA [None]
  - HAEMATOMA [None]
